FAERS Safety Report 9133120 (Version 4)
Quarter: 2013Q4

REPORT INFORMATION
  Report Type: Spontaneous
  Country: US (occurrence: US)
  Receive Date: 20130301
  Receipt Date: 20131125
  Transmission Date: 20140711
  Serious: Yes (Hospitalization, Disabling, Other)
  Sender: FDA-Public Use
  Company Number: US-MERCK-1303USA000359

PATIENT
  Sex: Female
  Weight: 62.59 kg

DRUGS (7)
  1. FOSAMAX [Suspect]
     Indication: OSTEOPOROSIS
     Dosage: 70 MG, QW
     Route: 048
     Dates: start: 20031030
  2. ALENDRONATE SODIUM [Suspect]
     Indication: OSTEOPOROSIS
     Dosage: 70 MG, QW
     Route: 048
     Dates: start: 20080229, end: 201103
  3. VITAMINS (UNSPECIFIED) [Concomitant]
     Dosage: 1 DF, QD
     Dates: start: 1990
  4. ASCORBIC ACID [Concomitant]
     Dosage: 500 MG, QD
     Dates: start: 2005
  5. LEVOTHYROXINE SODIUM [Concomitant]
     Indication: HYPOTHYROIDISM
     Dosage: UNK
  6. CALCIUM (UNSPECIFIED) [Concomitant]
     Indication: OSTEOPOROSIS
  7. VITAMIN D (UNSPECIFIED) [Concomitant]
     Indication: OSTEOPOROSIS

REACTIONS (50)
  - Femur fracture [Recovering/Resolving]
  - Intramedullary rod insertion [Unknown]
  - Femur fracture [Recovering/Resolving]
  - Low turnover osteopathy [Not Recovered/Not Resolved]
  - Radius fracture [Unknown]
  - Ulna fracture [Unknown]
  - Open reduction of fracture [Unknown]
  - Calcium deficiency [Unknown]
  - Infection [Unknown]
  - Herpes virus infection [Unknown]
  - Urinary tract infection [Unknown]
  - Sinusitis [Unknown]
  - Psoriasis [Unknown]
  - Rotator cuff syndrome [Unknown]
  - Arthritis [Unknown]
  - Bursitis [Unknown]
  - Iliotibial band syndrome [Unknown]
  - Cough [Unknown]
  - Cardiac murmur [Unknown]
  - Vitamin B12 deficiency [Unknown]
  - Intervertebral disc protrusion [Unknown]
  - Scoliosis [Unknown]
  - Patient-device incompatibility [Unknown]
  - Adverse event [Unknown]
  - Arthritis [Unknown]
  - Tinea infection [Unknown]
  - Fatigue [Unknown]
  - Cough [Unknown]
  - Palpitations [Unknown]
  - Varicose vein [Unknown]
  - Nocturia [Unknown]
  - Carotid bruit [Unknown]
  - Cerumen impaction [Unknown]
  - Spinal osteoarthritis [Unknown]
  - Urinary incontinence [Unknown]
  - Cataract operation [Unknown]
  - Chills [Unknown]
  - Radicular pain [Unknown]
  - Paraesthesia [Unknown]
  - Acne [Unknown]
  - Pruritus [Unknown]
  - Rash [Unknown]
  - Neck pain [Unknown]
  - Headache [Unknown]
  - Abdominal pain [Unknown]
  - Dysphagia [Unknown]
  - Myalgia [Unknown]
  - Dizziness [Unknown]
  - Dizziness [Unknown]
  - Drug ineffective [Unknown]
